FAERS Safety Report 18510954 (Version 1)
Quarter: 2020Q4

REPORT INFORMATION
  Report Type: Spontaneous
  Country: TW (occurrence: TW)
  Receive Date: 20201117
  Receipt Date: 20201117
  Transmission Date: 20210114
  Serious: Yes (Life-Threatening)
  Sender: FDA-Public Use
  Company Number: TW-BAYER-2020-240220

PATIENT
  Age: 39 Year
  Sex: Female
  Weight: 84 kg

DRUGS (2)
  1. GADOVIST [Suspect]
     Active Substance: GADOBUTROL
     Indication: MAGNETIC RESONANCE IMAGING
     Dosage: UNK, ONCE
     Dates: start: 20200310, end: 20200310
  2. GADOVIST [Suspect]
     Active Substance: GADOBUTROL
     Indication: DEEP VEIN THROMBOSIS

REACTIONS (2)
  - Dyspnoea [Recovered/Resolved]
  - Tachypnoea [Recovered/Resolved]

NARRATIVE: CASE EVENT DATE: 20200310
